FAERS Safety Report 5104632-7 (Version None)
Quarter: 2006Q3

REPORT INFORMATION
  Report Type: 
  Country: None (occurrence: None)
  Receive Date: 20060912
  Receipt Date: 20060912
  Transmission Date: 20061208
  Serious: Yes (Hospitalization)
  Sender: FDA-Public Use
  Company Number: None

PATIENT
  Age: 58 Year
  Sex: Male
  Weight: 93.6 kg

DRUGS (1)
  1. ZOLPIDEM TARTRATE [Suspect]
     Indication: SLEEP DISORDER
     Dosage: 12.5 MG DAILY PRN PO
     Route: 048
     Dates: start: 20060701, end: 20060801

REACTIONS (2)
  - HYPOTENSION [None]
  - RENAL IMPAIRMENT [None]
